FAERS Safety Report 7764113-9 (Version None)
Quarter: 2011Q3

REPORT INFORMATION
  Report Type: 
  Country: None (occurrence: None)
  Receive Date: 20110920
  Receipt Date: 20110920
  Transmission Date: 20111222
  Serious: Yes (Other)
  Sender: FDA-Public Use
  Company Number: None

PATIENT
  Sex: Female

DRUGS (1)
  1. CELEXA [Suspect]
     Indication: DEPRESSION
     Dates: start: 20090901, end: 20091001

REACTIONS (3)
  - MUSCLE TWITCHING [None]
  - POOR QUALITY SLEEP [None]
  - EYE DISORDER [None]
